FAERS Safety Report 6542928-2 (Version None)
Quarter: 2010Q1

REPORT INFORMATION
  Report Type: 
  Country: None (occurrence: None)
  Receive Date: 20100114
  Receipt Date: 20100108
  Transmission Date: 20100710
  Serious: Yes (Hospitalization)
  Sender: FDA-Public Use
  Company Number: 2010SP002137

PATIENT
  Age: 48 Year
  Sex: Female

DRUGS (12)
  1. REBETOL [Suspect]
     Indication: DRUG USE FOR UNKNOWN INDICATION
     Dates: start: 20091202
  2. PEGASYS [Concomitant]
  3. SUBUTEX [Concomitant]
  4. LIPANTHYL [Concomitant]
  5. TIAPRIDAL [Concomitant]
  6. NOCTRAN [Concomitant]
  7. SERESTA [Concomitant]
  8. EFFEXOR [Concomitant]
  9. AST [Concomitant]
  10. ALT [Concomitant]
  11. ALKALINE PHOSPHATASES [Concomitant]
  12. NEUTROPHILS [Concomitant]

REACTIONS (2)
  - CYTOLYTIC HEPATITIS [None]
  - NEUTROPENIA [None]
